FAERS Safety Report 9641182 (Version 2)
Quarter: 2014Q1

REPORT INFORMATION
  Report Type: Report from Study
  Country: CZ (occurrence: CZ)
  Receive Date: 20131023
  Receipt Date: 20140321
  Transmission Date: 20141002
  Serious: Yes (Hospitalization)
  Sender: FDA-Public Use
  Company Number: CZ-PFIZER INC-2013301788

PATIENT
  Age: 62 Year
  Sex: Male

DRUGS (1)
  1. SUTENT [Suspect]
     Indication: RENAL CELL CARCINOMA
     Dosage: 25 MG, 1X/DAY 4 WEEKS ON/2WEEKS OFF
     Route: 048

REACTIONS (6)
  - Appendicitis [Recovered/Resolved]
  - Local swelling [Unknown]
  - Muscle spasms [Unknown]
  - Pain in extremity [Unknown]
  - Abdominal hernia [Unknown]
  - Inguinal hernia [Unknown]
